FAERS Safety Report 6933719-9 (Version None)
Quarter: 2010Q3

REPORT INFORMATION
  Report Type: 
  Country: None (occurrence: None)
  Receive Date: 20100820
  Receipt Date: 20100812
  Transmission Date: 20110219
  Serious: Yes (Other)
  Sender: FDA-Public Use
  Company Number: US-PFIZER INC-2010102010

PATIENT
  Age: 9 Year
  Sex: Female

DRUGS (1)
  1. GEODON [Suspect]
     Dosage: 80 MG, 1X/DAY
     Dates: start: 20100101

REACTIONS (4)
  - ANGER [None]
  - ELEVATED MOOD [None]
  - IRRITABILITY [None]
  - TACHYPHRENIA [None]
